FAERS Safety Report 26207468 (Version 1)
Quarter: 2025Q4

REPORT INFORMATION
  Report Type: Spontaneous
  Country: CN (occurrence: CN)
  Receive Date: 20251229
  Receipt Date: 20251229
  Transmission Date: 20260118
  Serious: Yes (Other)
  Sender: BAXTER
  Company Number: None

PATIENT
  Age: 61 Year
  Sex: Female
  Weight: 66 kg

DRUGS (4)
  1. CYCLOPHOSPHAMIDE [Suspect]
     Active Substance: CYCLOPHOSPHAMIDE
     Indication: Breast cancer female
     Dosage: 1 G, QD
     Route: 041
     Dates: start: 20251121, end: 20251121
  2. DOXORUBICIN HYDROCHLORIDE [Suspect]
     Active Substance: DOXORUBICIN HYDROCHLORIDE
     Indication: Breast cancer female
     Dosage: 59 MG, QD (PREPARED BY SELF)
     Route: 041
     Dates: start: 20251121, end: 20251121
  3. SODIUM CHLORIDE [Suspect]
     Active Substance: SODIUM CHLORIDE
     Indication: Vehicle solution use
     Dosage: 0.9% NS 50 ML, QD, WITH CYCLOPHOSPHAMIDE FOR INJECTION D1
     Route: 041
     Dates: start: 20251121, end: 20251121
  4. DEXTROSE [Suspect]
     Active Substance: DEXTROSE MONOHYDRATE
     Indication: Vehicle solution use
     Dosage: 5% GS 500 ML, QD WITH DOXORUBICIN HYDROCHLORIDE LIPOSOME INJECTION, D1
     Route: 041
     Dates: start: 20251121, end: 20251121

REACTIONS (1)
  - Leukopenia [Unknown]

NARRATIVE: CASE EVENT DATE: 20251211
